FAERS Safety Report 4746446-3 (Version None)
Quarter: 2005Q3

REPORT INFORMATION
  Report Type: 
  Country: None (occurrence: None)
  Receive Date: 20050816
  Receipt Date: 20050816
  Transmission Date: 20060218
  Serious: Yes (Hospitalization)
  Sender: FDA-Public Use
  Company Number: None

PATIENT
  Age: 53 Year
  Sex: Male
  Weight: 53.5244 kg

DRUGS (9)
  1. LAMIVUDINE [Suspect]
     Indication: HIV INFECTION
     Dosage: 1 TAB BID PO
     Route: 048
     Dates: start: 20050127, end: 20050703
  2. TENOFOVIR [Suspect]
     Indication: HIV INFECTION
     Dosage: 1 TAB QD PO
     Route: 048
     Dates: start: 20050127, end: 20050703
  3. LOPINAVIR/RITONAVIR [Suspect]
     Indication: HIV INFECTION
     Dosage: 3 CAPS BID PO
     Route: 048
     Dates: start: 20011101, end: 20050703
  4. MOXIFLOXACIN [Concomitant]
  5. ACETAMINOPHEN [Concomitant]
  6. DARBEPOETIN [Concomitant]
  7. DAPSONE [Concomitant]
  8. ETHAMBUTOL HYDROCHLORIDE [Concomitant]
  9. RIFABUTIN [Concomitant]

REACTIONS (13)
  - ANAEMIA [None]
  - ANORECTAL DISORDER [None]
  - CHOLECYSTITIS ACUTE [None]
  - DIARRHOEA [None]
  - HYPOGLYCAEMIA [None]
  - HYPOTENSION [None]
  - METABOLIC ACIDOSIS [None]
  - NEUTROPENIA [None]
  - OEDEMA [None]
  - PERICARDIAL RUB [None]
  - RENAL FAILURE ACUTE [None]
  - SYSTEMIC CANDIDA [None]
  - VENOUS PRESSURE JUGULAR INCREASED [None]
